FAERS Safety Report 17044203 (Version 2)
Quarter: 2019Q4

REPORT INFORMATION
  Report Type: Spontaneous
  Country: DE (occurrence: DE)
  Receive Date: 20191118
  Receipt Date: 20191128
  Transmission Date: 20200122
  Serious: Yes (Other)
  Sender: FDA-Public Use
  Company Number: DE-BRISTOL-MYERS SQUIBB COMPANY-BMS-2019-107059

PATIENT
  Age: 89 Year
  Sex: Male

DRUGS (1)
  1. OPDIVO [Suspect]
     Active Substance: NIVOLUMAB
     Indication: LARYNGEAL CANCER
     Dosage: 3 MILLIGRAM/KILOGRAM, Q3WK
     Route: 065
     Dates: start: 20170315, end: 2018

REACTIONS (10)
  - Malignant neoplasm progression [Unknown]
  - Skin reaction [Unknown]
  - Myalgia [Unknown]
  - Pneumonitis [Unknown]
  - Toxicity to various agents [Unknown]
  - Off label use [Unknown]
  - Herpes zoster [Unknown]
  - Troponin increased [Unknown]
  - Muscle discomfort [Unknown]
  - Atrial fibrillation [Unknown]

NARRATIVE: CASE EVENT DATE: 201705
